FAERS Safety Report 26188538 (Version 1)
Quarter: 2025Q4

REPORT INFORMATION
  Report Type: Spontaneous
  Country: RU (occurrence: RU)
  Receive Date: 20251222
  Receipt Date: 20251222
  Transmission Date: 20260118
  Serious: Yes (Other)
  Sender: MERCK SHARP & DOHME LLC
  Company Number: RU-009507513-2362001

PATIENT
  Age: 36 Year
  Sex: Female

DRUGS (3)
  1. PEMBROLIZUMAB [Suspect]
     Active Substance: PEMBROLIZUMAB
     Indication: Cervix carcinoma recurrent
     Dosage: 6 COURSES OF CHEMOTHERAPY/IMMUNOTHERAPY. IMMUNOTHERAPY CONTINUED
     Route: 042
     Dates: start: 2024
  2. CISPLATIN [Suspect]
     Active Substance: CISPLATIN
     Indication: Cervix carcinoma recurrent
     Dosage: ON DAY 1 ONCE EVERY 3 WEEKS
     Route: 042
     Dates: start: 2024, end: 202410
  3. PACLITAXEL [Suspect]
     Active Substance: PACLITAXEL
     Indication: Cervix carcinoma recurrent
     Dosage: SIX COURSES OF CHEMOTHERAPY/IMMUNOTHERAPY. ON DAY 1
     Route: 042
     Dates: start: 2024, end: 202410

REACTIONS (6)
  - Thrombocytopenia [Recovered/Resolved]
  - Leukopenia [Recovered/Resolved]
  - Anaemia [Recovered/Resolved]
  - Amylase increased [Recovered/Resolved]
  - Transaminases increased [Recovered/Resolved]
  - Toxicity to various agents [Recovered/Resolved]

NARRATIVE: CASE EVENT DATE: 20240101
